FAERS Safety Report 6531158-6 (Version None)
Quarter: 2010Q1

REPORT INFORMATION
  Report Type: 
  Country: None (occurrence: None)
  Receive Date: 20100108
  Receipt Date: 20100104
  Transmission Date: 20100710
  Serious: Yes (Other)
  Sender: FDA-Public Use
  Company Number: US-BAYER-200930724NA

PATIENT
  Age: 69 Year
  Sex: Male

DRUGS (6)
  1. LEVITRA [Suspect]
     Indication: ERECTILE DYSFUNCTION
     Dosage: 1/2 PILL OF SAMPLE
     Route: 048
     Dates: start: 20070701
  2. COUMADIN [Concomitant]
  3. ZOCOR [Concomitant]
  4. DIGITEK [Concomitant]
  5. BABY ASPIRIN [Concomitant]
  6. FISH OIL [Concomitant]

REACTIONS (9)
  - BLINDNESS [None]
  - BLINDNESS TRANSIENT [None]
  - BLOOD GLUCOSE DECREASED [None]
  - CHEST PAIN [None]
  - FALL [None]
  - HYPOTENSION [None]
  - OPTIC NERVE INFARCTION [None]
  - RIB FRACTURE [None]
  - SYNCOPE [None]
